FAERS Safety Report 17650098 (Version 1)
Quarter: 2020Q2

REPORT INFORMATION
  Report Type: Spontaneous
  Country: US (occurrence: US)
  Receive Date: 20200409
  Receipt Date: 20200409
  Transmission Date: 20200713
  Serious: No
  Sender: FDA-Public Use
  Company Number: US-ASTRAZENECA-2020SE45850

PATIENT
  Sex: Male
  Weight: 135.6 kg

DRUGS (13)
  1. MUTIVITAMIN FOR OVER 50 [Concomitant]
     Route: 048
  2. OCULAR VITAMIN [Concomitant]
     Indication: EYE DISORDER PROPHYLAXIS
     Route: 048
  3. MELATONIN [Concomitant]
     Active Substance: MELATONIN
     Indication: SLEEP DISORDER
     Route: 048
  4. VITAMIN C [Concomitant]
     Active Substance: ASCORBIC ACID
     Indication: CEREBRAL DISORDER
     Route: 048
  5. BIOTIN [Concomitant]
     Active Substance: BIOTIN
     Indication: CEREBRAL DISORDER
     Route: 048
  6. BYDUREON BCISE [Suspect]
     Active Substance: EXENATIDE
     Indication: PARKINSON^S DISEASE
     Route: 058
  7. CARBIDOPA LEVODOPA [Concomitant]
     Active Substance: CARBIDOPA\LEVODOPA
     Indication: PARKINSON^S DISEASE
     Route: 048
  8. ENTACAPONE. [Concomitant]
     Active Substance: ENTACAPONE
     Indication: PARKINSON^S DISEASE
     Route: 048
  9. MYRBETRIQ [Concomitant]
     Active Substance: MIRABEGRON
     Indication: MICTURITION URGENCY
     Route: 048
  10. BYDUREON BCISE [Suspect]
     Active Substance: EXENATIDE
     Indication: PARKINSON^S DISEASE
     Route: 058
     Dates: start: 20200323
  11. BYDUREON [Suspect]
     Active Substance: EXENATIDE
     Indication: PARKINSON^S DISEASE
     Route: 058
     Dates: end: 20200323
  12. RASAGILINE. [Concomitant]
     Active Substance: RASAGILINE
     Indication: PARKINSON^S DISEASE
     Route: 048
  13. COQ10 [Concomitant]
     Active Substance: UBIDECARENONE
     Indication: CEREBRAL DISORDER
     Route: 048

REACTIONS (4)
  - Memory impairment [Not Recovered/Not Resolved]
  - Therapeutic response shortened [Not Recovered/Not Resolved]
  - Paraesthesia [Not Recovered/Not Resolved]
  - Product use in unapproved indication [Not Recovered/Not Resolved]
